FAERS Safety Report 8246201-6 (Version None)
Quarter: 2012Q1

REPORT INFORMATION
  Report Type: 
  Country: None (occurrence: None)
  Receive Date: 20120330
  Receipt Date: 20120321
  Transmission Date: 20120608
  Serious: Yes (Other)
  Sender: FDA-Public Use
  Company Number: BR-US-EMD SERONO, INC.-7121707

PATIENT
  Sex: Female
  Weight: 40 kg

DRUGS (3)
  1. AMITRIPTILINE (AMITRIPTYLINE) [Concomitant]
     Indication: PRODUCT USED FOR UNKNOWN INDICATION
  2. CAPTROPIL (CAPTOPRIL) [Concomitant]
     Indication: PRODUCT USED FOR UNKNOWN INDICATION
  3. REBIF [Suspect]
     Indication: RELAPSING-REMITTING MULTIPLE SCLEROSIS
     Dates: start: 20100507

REACTIONS (2)
  - WEIGHT DECREASED [None]
  - PNEUMONIA [None]
